FAERS Safety Report 24601445 (Version 1)
Quarter: 2024Q4

REPORT INFORMATION
  Report Type: Spontaneous
  Country: JP (occurrence: JP)
  Receive Date: 20241111
  Receipt Date: 20241111
  Transmission Date: 20250114
  Serious: Yes (Other)
  Sender: TAKEDA
  Company Number: JP-TAKEDA-2024TJP015979

PATIENT
  Age: 35 Year
  Sex: Male

DRUGS (8)
  1. TRINTELLIX [Suspect]
     Active Substance: VORTIOXETINE HYDROBROMIDE
     Indication: Depression
     Dosage: 20 MILLIGRAM, QD
  2. TRINTELLIX [Suspect]
     Active Substance: VORTIOXETINE HYDROBROMIDE
     Dosage: UNK
  3. INTUNIV [Suspect]
     Active Substance: GUANFACINE HYDROCHLORIDE
     Indication: Attention deficit hyperactivity disorder
     Dosage: 3 MILLIGRAM, QD
  4. INTUNIV [Suspect]
     Active Substance: GUANFACINE HYDROCHLORIDE
     Dosage: UNK
  5. STRATTERA [Suspect]
     Active Substance: ATOMOXETINE HYDROCHLORIDE
     Indication: Product used for unknown indication
     Dosage: UNK
  6. STRATTERA [Suspect]
     Active Substance: ATOMOXETINE HYDROCHLORIDE
     Dosage: UNK
  7. CLOXAZOLAM [Suspect]
     Active Substance: CLOXAZOLAM
     Indication: Product used for unknown indication
     Dosage: UNK
  8. CLOXAZOLAM [Suspect]
     Active Substance: CLOXAZOLAM
     Dosage: UNK

REACTIONS (1)
  - Tardive dyskinesia [Not Recovered/Not Resolved]
